FAERS Safety Report 4526210-0 (Version None)
Quarter: 2004Q4

REPORT INFORMATION
  Report Type: 
  Country: None (occurrence: None)
  Receive Date: 20041214
  Receipt Date: 20041208
  Transmission Date: 20050328
  Serious: Yes (Hospitalization)
  Sender: FDA-Public Use
  Company Number: 200414611FR

PATIENT
  Age: 59 Year
  Sex: Male
  Weight: 70 kg

DRUGS (4)
  1. FLAGYL [Suspect]
     Indication: BRAIN ABSCESS
     Route: 042
  2. FLAGYL [Suspect]
     Indication: PNEUMONITIS
     Route: 042
  3. AUGMENTIN '125' [Concomitant]
     Indication: PNEUMONITIS
  4. ROCEPHIN [Concomitant]
     Indication: BRAIN ABSCESS

REACTIONS (4)
  - BRAIN ABSCESS [None]
  - CEREBELLAR ATAXIA [None]
  - NEUROPATHY PERIPHERAL [None]
  - POLYNEUROPATHY [None]
